FAERS Safety Report 8383818-2 (Version None)
Quarter: 2012Q1

REPORT INFORMATION
  Report Type: 
  Country: None (occurrence: None)
  Receive Date: 20120323
  Receipt Date: 20110318
  Transmission Date: 20120608
  Serious: Yes (Other)
  Sender: FDA-Public Use
  Company Number: 163-21880-11030610

PATIENT
  Age: 57 Year
  Sex: Male

DRUGS (3)
  1. REVLIMID [Suspect]
     Indication: MULTIPLE MYELOMA
     Dosage: 10 MG, 1 IN 1 D, PO 15 MG, Q 3 WEEKS, PO 15 MG, DAILY FOR 14 DAYS, PO
     Route: 048
     Dates: start: 20101130
  2. REVLIMID [Suspect]
     Indication: MULTIPLE MYELOMA
     Dosage: 10 MG, 1 IN 1 D, PO 15 MG, Q 3 WEEKS, PO 15 MG, DAILY FOR 14 DAYS, PO
     Route: 048
     Dates: start: 20100801
  3. REVLIMID [Suspect]
     Indication: MULTIPLE MYELOMA
     Dosage: 10 MG, 1 IN 1 D, PO 15 MG, Q 3 WEEKS, PO 15 MG, DAILY FOR 14 DAYS, PO
     Route: 048
     Dates: start: 20110211

REACTIONS (1)
  - PNEUMONIA [None]
